FAERS Safety Report 23344853 (Version 1)
Quarter: 2023Q4

REPORT INFORMATION
  Report Type: Spontaneous
  Country: MD (occurrence: MD)
  Receive Date: 20231228
  Receipt Date: 20231228
  Transmission Date: 20240110
  Serious: Yes (Hospitalization)
  Sender: FDA-Public Use
  Company Number: MD-MACLEODS PHARMACEUTICALS US LTD-MAC2023045036

PATIENT

DRUGS (5)
  1. PYRAZINAMIDE [Suspect]
     Active Substance: PYRAZINAMIDE
     Indication: Tuberculosis
     Dosage: 1600 MILLIGRAM, QD, DATEOFMANUFACTURE NOV 2022
     Route: 048
     Dates: start: 20230825, end: 20231010
  2. LEVOFLOXACIN [Concomitant]
     Active Substance: LEVOFLOXACIN
     Indication: Tuberculosis
     Dosage: 1000 MILLIGRAM, QD, DRUG THERAPY FOR RELIEF OF THE SIDE EFFECT:SOL.ARGININI 250ML I/V,
     Route: 048
     Dates: start: 20230825
  3. ETHAMBUTOL [Concomitant]
     Active Substance: ETHAMBUTOL HYDROCHLORIDE
     Indication: Tuberculosis
     Dosage: 1200 MILLIGRAM, QD
     Route: 048
     Dates: start: 20231103
  4. RIFAMPIN [Concomitant]
     Active Substance: RIFAMPIN
     Indication: Tuberculosis
     Dosage: 600 MILLIGRAM, QD
     Route: 048
     Dates: start: 20230821
  5. SILIMARINA [Concomitant]
     Indication: Tuberculosis
     Dosage: 420 MILLIGRAM, QD
     Route: 048
     Dates: start: 20230825

REACTIONS (1)
  - Transaminases increased [Unknown]

NARRATIVE: CASE EVENT DATE: 20231009
